FAERS Safety Report 8444309-3 (Version None)
Quarter: 2012Q2

REPORT INFORMATION
  Report Type: 
  Country: None (occurrence: None)
  Receive Date: 20120618
  Receipt Date: 20120605
  Transmission Date: 20120825
  Serious: Yes (Other)
  Sender: FDA-Public Use
  Company Number: US-SANOFI-AVENTIS-2012SA040572

PATIENT
  Age: 81 Year
  Sex: Male

DRUGS (2)
  1. ALLEGRA [Suspect]
     Route: 048
  2. ALLEGRA [Suspect]
     Route: 048

REACTIONS (3)
  - DYSPHAGIA [None]
  - OESOPHAGEAL CARCINOMA [None]
  - OESOPHAGEAL DISORDER [None]
